FAERS Safety Report 7407630-3 (Version None)
Quarter: 2011Q2

REPORT INFORMATION
  Report Type: 
  Country: None (occurrence: None)
  Receive Date: 20110405
  Receipt Date: 20110331
  Transmission Date: 20111010
  Serious: Yes (Death, Other)
  Sender: FDA-Public Use
  Company Number: 2011SP004217

PATIENT
  Age: 73 Year
  Sex: Male
  Weight: 50 kg

DRUGS (5)
  1. ESLAX (ROCURONIUM BROMIDE /01245702/) [Suspect]
     Indication: NEUROMUSCULAR BLOCKING THERAPY
     Dosage: 50 MG; ONCE; IV
     Route: 042
     Dates: start: 20110126, end: 20110126
  2. FENTANYL [Suspect]
     Indication: PRODUCT USED FOR UNKNOWN INDICATION
     Dosage: 0.25 MG; ; IV, ; INDRP
     Dates: start: 20110126, end: 20110131
  3. FENTANYL [Suspect]
     Indication: PRODUCT USED FOR UNKNOWN INDICATION
     Dosage: 0.25 MG; ; IV, ; INDRP
     Dates: start: 20110126
  4. DORMICUM (MIDAZOLAM /00634101/) [Suspect]
     Indication: PRODUCT USED FOR UNKNOWN INDICATION
     Dosage: ; INDRP
     Route: 041
     Dates: start: 20110126, end: 20110127
  5. BRIDION [Concomitant]

REACTIONS (4)
  - NEUROMUSCULAR BLOCK PROLONGED [None]
  - SEPTIC SHOCK [None]
  - DELAYED RECOVERY FROM ANAESTHESIA [None]
  - MULTI-ORGAN FAILURE [None]
